FAERS Safety Report 7036274-0 (Version None)
Quarter: 2010Q4

REPORT INFORMATION
  Report Type: 
  Country: None (occurrence: None)
  Receive Date: 20101008
  Receipt Date: 20100930
  Transmission Date: 20110411
  Serious: Yes (Life-Threatening)
  Sender: FDA-Public Use
  Company Number: IT-ABBOTT-10P-083-0674824-00

PATIENT
  Sex: Female

DRUGS (4)
  1. HUMIRA [Suspect]
     Indication: RHEUMATOID ARTHRITIS
     Route: 058
     Dates: start: 20080214, end: 20090311
  2. METOTREXATO [Concomitant]
     Indication: RHEUMATOID ARTHRITIS
     Dates: start: 20070515, end: 20100927
  3. FOLIC ACID [Concomitant]
     Indication: RHEUMATOID ARTHRITIS
     Dates: start: 20070516, end: 20100927
  4. CELECOXIB [Concomitant]
     Indication: RHEUMATOID ARTHRITIS
     Dates: start: 20080616, end: 20090505

REACTIONS (1)
  - PULMONARY SARCOIDOSIS [None]
